FAERS Safety Report 6104332-0 (Version None)
Quarter: 2009Q1

REPORT INFORMATION
  Report Type: 
  Country: None (occurrence: None)
  Receive Date: 20090305
  Receipt Date: 20090224
  Transmission Date: 20090719
  Serious: Yes (Hospitalization, Other)
  Sender: FDA-Public Use
  Company Number: JP-ABBOTT-09P-087-0559981-00

PATIENT
  Age: 71 Year
  Sex: Male

DRUGS (3)
  1. LEUPLIN DEPOT [Suspect]
     Indication: PROSTATE CANCER
     Route: 058
     Dates: start: 20070701
  2. DEXAMETHASONE [Suspect]
     Indication: PROSTATE CANCER
     Dosage: UNKNOWN UNKNOWN
     Dates: start: 20080701
  3. ETHINYLESTRADIOL [Suspect]
     Indication: PROSTATE CANCER
     Route: 048
     Dates: start: 20080901

REACTIONS (3)
  - DEEP VEIN THROMBOSIS [None]
  - HYPERGLYCAEMIA [None]
  - PULMONARY EMBOLISM [None]
